FAERS Safety Report 26180826 (Version 1)
Quarter: 2025Q4

REPORT INFORMATION
  Report Type: Spontaneous
  Country: EU (occurrence: EU)
  Receive Date: 20251221
  Receipt Date: 20251221
  Transmission Date: 20260118
  Serious: Yes (Hospitalization)
  Sender: AMGEN
  Company Number: EU-AMGEN-POLSP2025246805

PATIENT
  Age: 65 Year
  Sex: Male

DRUGS (14)
  1. SOTORASIB [Suspect]
     Active Substance: SOTORASIB
     Indication: Squamous cell carcinoma of lung
     Dosage: UNK
     Route: 065
     Dates: start: 2025
  2. PEMBROLIZUMAB [Concomitant]
     Active Substance: PEMBROLIZUMAB
     Indication: Non-small cell lung cancer
     Dosage: 200 MILLIGRAM, Q3WK
     Route: 040
  3. METHYLPREDNISOLONE [Concomitant]
     Active Substance: METHYLPREDNISOLONE
     Indication: Radiation pneumonitis
     Dosage: 2 MILLIGRAM/KILOGRAM, QD
     Route: 040
  4. METHYLPREDNISOLONE [Concomitant]
     Active Substance: METHYLPREDNISOLONE
     Indication: Immune-mediated lung disease
     Dosage: 1.5 MILLIGRAM/KILOGRAM, QD
     Route: 040
  5. METHYLPREDNISOLONE [Concomitant]
     Active Substance: METHYLPREDNISOLONE
     Dosage: 1 MILLIGRAM/KILOGRAM, QD
     Route: 040
  6. PREDNISONE [Concomitant]
     Active Substance: PREDNISONE
     Indication: Radiation pneumonitis
     Route: 048
  7. PREDNISONE [Concomitant]
     Active Substance: PREDNISONE
     Indication: Immune-mediated lung disease
  8. BISEPTOL [Concomitant]
     Active Substance: SULFAMETHOXAZOLE\TRIMETHOPRIM
     Indication: Pneumocystis jirovecii pneumonia
     Dosage: 960 MILLIGRAM, TID
     Route: 048
  9. BISEPTOL [Concomitant]
     Active Substance: SULFAMETHOXAZOLE\TRIMETHOPRIM
     Dosage: 960 MILLIGRAM, TID (2 TABLETS)
     Route: 048
  10. SODIUM CHLORIDE [Concomitant]
     Active Substance: SODIUM CHLORIDE
     Indication: Hyponatraemia
     Dosage: 3 PERCENT
     Route: 040
  11. TRIMETHOPRIM [Concomitant]
     Active Substance: TRIMETHOPRIM
     Indication: Pneumonitis
     Dosage: UNK
     Dates: start: 20250520
  12. TRIMETHOPRIM [Concomitant]
     Active Substance: TRIMETHOPRIM
     Indication: Pneumocystis jirovecii pneumonia
  13. SULFAMETHOXAZOLE [Concomitant]
     Active Substance: SULFAMETHOXAZOLE
     Indication: Pneumonitis
     Dosage: UNK
     Dates: start: 20250520
  14. SULFAMETHOXAZOLE [Concomitant]
     Active Substance: SULFAMETHOXAZOLE
     Indication: Pneumocystis jirovecii pneumonia

REACTIONS (1)
  - Squamous cell carcinoma of lung [Unknown]

NARRATIVE: CASE EVENT DATE: 20250101
